FAERS Safety Report 13826002 (Version 1)
Quarter: 2017Q3

REPORT INFORMATION
  Report Type: Spontaneous
  Country: US (occurrence: US)
  Receive Date: 20170802
  Receipt Date: 20170802
  Transmission Date: 20171127
  Serious: Yes (Hospitalization)
  Sender: FDA-Public Use
  Company Number: US-SAOL THERAPEUTICS-2017SAO01258

PATIENT
  Sex: Female

DRUGS (3)
  1. OTHER MEDICATONS (UNSPECIFIED) [Concomitant]
  2. BACLOFEN. [Suspect]
     Active Substance: BACLOFEN
     Indication: MUSCLE SPASTICITY
     Route: 037
  3. BACLOFEN. [Suspect]
     Active Substance: BACLOFEN
     Indication: STIFF PERSON SYNDROME

REACTIONS (3)
  - Seizure [Unknown]
  - Electroencephalogram abnormal [Unknown]
  - Aphasia [Unknown]

NARRATIVE: CASE EVENT DATE: 2017
